FAERS Safety Report 9101954 (Version 1)
Quarter: 2013Q1

REPORT INFORMATION
  Report Type: Spontaneous
  Country: US (occurrence: US)
  Receive Date: 20130218
  Receipt Date: 20130218
  Transmission Date: 20140127
  Serious: Yes (Other)
  Sender: FDA-Public Use
  Company Number: US-ELI_LILLY_AND_COMPANY-US201302002636

PATIENT
  Sex: Male

DRUGS (4)
  1. CYMBALTA [Suspect]
     Indication: NEUROPATHY PERIPHERAL
     Dosage: 60 MG, UNK
     Dates: start: 2007, end: 20130131
  2. COQ10 [Concomitant]
  3. DIOVAN [Concomitant]
  4. KLONOPIN [Concomitant]

REACTIONS (10)
  - Convulsion [Unknown]
  - Loss of consciousness [Unknown]
  - Empty sella syndrome [Unknown]
  - Cardiac valve disease [Unknown]
  - Off label use [Recovered/Resolved]
  - Non-cardiac chest pain [Recovered/Resolved]
  - Nausea [Unknown]
  - Diarrhoea [Unknown]
  - Insomnia [Unknown]
  - Heart rate decreased [Unknown]
